FAERS Safety Report 10465133 (Version 1)
Quarter: 2014Q3

REPORT INFORMATION
  Report Type: Spontaneous
  Country: US (occurrence: US)
  Receive Date: 20140919
  Receipt Date: 20140919
  Transmission Date: 20150326
  Serious: No
  Sender: FDA-Public Use
  Company Number: US-TEVA-510304USA

PATIENT
  Age: 47 Year
  Sex: Female
  Weight: 61.29 kg

DRUGS (2)
  1. PARAGARD T380A [Suspect]
     Active Substance: COPPER
     Indication: CONTRACEPTION
     Route: 015
     Dates: start: 200406
  2. SYNTHROID [Concomitant]
     Active Substance: LEVOTHYROXINE SODIUM
     Indication: THYROID HORMONE REPLACEMENT THERAPY

REACTIONS (2)
  - Menstruation irregular [Not Recovered/Not Resolved]
  - Expired device used [Not Recovered/Not Resolved]

NARRATIVE: CASE EVENT DATE: 201406
